FAERS Safety Report 9343882 (Version 1)
Quarter: 2013Q2

REPORT INFORMATION
  Report Type: Spontaneous
  Country: GB (occurrence: GB)
  Receive Date: 20130612
  Receipt Date: 20130612
  Transmission Date: 20140414
  Serious: Yes (Other)
  Sender: FDA-Public Use
  Company Number: GB-ROXANE LABORATORIES, INC.-2013-RO-00915RO

PATIENT
  Age: 23 Year
  Sex: Male

DRUGS (11)
  1. METHADONE [Suspect]
     Indication: PAIN
     Dosage: 150 MG
     Route: 048
  2. OXYCODONE [Suspect]
     Indication: PAIN
     Dosage: 1140 MG
     Route: 048
  3. DIAZEPAM [Concomitant]
     Indication: ANXIETY
     Route: 048
  4. DIAZEPAM [Concomitant]
     Indication: MUSCLE SPASMS
  5. LORAZEPAM [Concomitant]
     Indication: ANXIETY
     Route: 042
  6. FUROSEMIDE [Concomitant]
     Indication: OEDEMA PERIPHERAL
  7. OMEPRAZOLE [Concomitant]
  8. DOCUSATE [Concomitant]
  9. LEVOTHYROXINE [Concomitant]
  10. FERROUS SULFATE [Concomitant]
  11. ERGOCALCIFEROL [Concomitant]

REACTIONS (3)
  - Drug ineffective [Recovered/Resolved]
  - Malabsorption [Unknown]
  - Quality of life decreased [Unknown]
